FAERS Safety Report 5016181-5 (Version None)
Quarter: 2006Q2

REPORT INFORMATION
  Report Type: 
  Country: None (occurrence: None)
  Receive Date: 20060414
  Receipt Date: 20060307
  Transmission Date: 20061013
  Serious: No
  Sender: FDA-Public Use
  Company Number: 2006SP001120

PATIENT
  Age: 74 Year
  Sex: Female
  Weight: 63.05 kg

DRUGS (2)
  1. LUNESTA [Suspect]
     Indication: INSOMNIA
     Dosage: 2 MG 1X ORAL
     Route: 048
     Dates: start: 20060304, end: 20060304
  2. ATIVAN [Concomitant]

REACTIONS (2)
  - DIZZINESS [None]
  - INSOMNIA [None]
